FAERS Safety Report 7597483-5 (Version None)
Quarter: 2011Q3

REPORT INFORMATION
  Report Type: 
  Country: None (occurrence: None)
  Receive Date: 20110708
  Receipt Date: 20110629
  Transmission Date: 20111222
  Serious: Yes (Other)
  Sender: FDA-Public Use
  Company Number: PHHY2011DE58017

PATIENT
  Age: 65 Year
  Sex: Male

DRUGS (2)
  1. ZOMETA [Suspect]
     Route: 042
     Dates: start: 20050801, end: 20070801
  2. CORTISONE ACETATE [Concomitant]

REACTIONS (2)
  - JAW DISORDER [None]
  - OSTEONECROSIS OF JAW [None]
